FAERS Safety Report 12186823 (Version 1)
Quarter: 2016Q1

REPORT INFORMATION
  Report Type: Spontaneous
  Country: CA (occurrence: None)
  Receive Date: 20160316
  Receipt Date: 20160316
  Transmission Date: 20160526
  Serious: Yes (Hospitalization)
  Sender: FDA-Public Use
  Company Number: None

PATIENT
  Age: 53 Year
  Sex: Male
  Weight: 94 kg

DRUGS (5)
  1. DECADRON [Concomitant]
     Active Substance: DEXAMETHASONE
  2. HYDROMORPH CONTIN [Concomitant]
     Active Substance: HYDROMORPHONE
  3. FLOMAX [Concomitant]
     Active Substance: TAMSULOSIN HYDROCHLORIDE
  4. OXAZEPAM. [Concomitant]
     Active Substance: OXAZEPAM
  5. MEMANTINE HYDROCHLORIDE [Suspect]
     Active Substance: MEMANTINE HYDROCHLORIDE
     Dates: end: 20160307

REACTIONS (6)
  - Nausea [None]
  - Hydrocephalus [None]
  - Asthenia [None]
  - Headache [None]
  - Vomiting [None]
  - Brain herniation [None]

NARRATIVE: CASE EVENT DATE: 20160307
